FAERS Safety Report 23930019 (Version 1)
Quarter: 2024Q2

REPORT INFORMATION
  Report Type: Spontaneous
  Country: PT (occurrence: PT)
  Receive Date: 20240601
  Receipt Date: 20240601
  Transmission Date: 20240716
  Serious: Yes (Death, Hospitalization, Other)
  Sender: FDA-Public Use
  Company Number: PT-AUROBINDO-AUR-APL-2024-025742

PATIENT
  Age: 69 Year
  Sex: Female

DRUGS (1)
  1. ACYCLOVIR [Suspect]
     Active Substance: ACYCLOVIR
     Indication: Encephalitis
     Dosage: UNK
     Route: 042

REACTIONS (1)
  - Drug ineffective [Fatal]
